FAERS Safety Report 6362516-0 (Version None)
Quarter: 2009Q3

REPORT INFORMATION
  Report Type: 
  Country: None (occurrence: None)
  Receive Date: 20090918
  Receipt Date: 20090601
  Transmission Date: 20100115
  Serious: No
  Sender: FDA-Public Use
  Company Number: US-ABBOTT-09P-163-0576930-00

PATIENT
  Sex: Female
  Weight: 68.1 kg

DRUGS (2)
  1. HUMIRA [Suspect]
     Indication: PSORIATIC ARTHROPATHY
     Dates: start: 20080901
  2. METHOTREXATE [Concomitant]
     Indication: PSORIATIC ARTHROPATHY

REACTIONS (1)
  - DRUG DOSE OMISSION [None]
